FAERS Safety Report 6705635-9 (Version None)
Quarter: 2010Q2

REPORT INFORMATION
  Report Type: 
  Country: None (occurrence: None)
  Receive Date: 20100503
  Receipt Date: 20100422
  Transmission Date: 20101027
  Serious: No
  Sender: FDA-Public Use
  Company Number: 2009BI012590

PATIENT
  Sex: Female

DRUGS (1)
  1. TYSABRI [Suspect]
     Indication: MULTIPLE SCLEROSIS
     Route: 042
     Dates: start: 20081110

REACTIONS (6)
  - CYSTITIS [None]
  - GUTTATE PSORIASIS [None]
  - NASOPHARYNGITIS [None]
  - ORAL HERPES [None]
  - PHARYNGITIS STREPTOCOCCAL [None]
  - STREPTOCOCCAL INFECTION [None]
